FAERS Safety Report 5503413-X (Version None)
Quarter: 2007Q4

REPORT INFORMATION
  Report Type: 
  Country: None (occurrence: None)
  Receive Date: 20071031
  Receipt Date: 20071023
  Transmission Date: 20080405
  Serious: Yes (Other)
  Sender: FDA-Public Use
  Company Number: FR-PFIZER INC-2007087185

PATIENT
  Sex: Female

DRUGS (4)
  1. VFEND [Suspect]
     Route: 042
  2. VFEND [Suspect]
     Route: 048
  3. ANTIBIOTICS [Concomitant]
  4. PROGRAF [Concomitant]

REACTIONS (1)
  - DEAFNESS [None]
